FAERS Safety Report 4999001-4 (Version None)
Quarter: 2006Q2

REPORT INFORMATION
  Report Type: 
  Country: None (occurrence: None)
  Receive Date: 20060508
  Receipt Date: 20060426
  Transmission Date: 20061013
  Serious: Yes (Death, Hospitalization)
  Sender: FDA-Public Use
  Company Number: HQWYE023127APR06

PATIENT
  Age: 7 Year
  Sex: Female

DRUGS (3)
  1. PHENERGAN [Suspect]
     Indication: GASTROENTERITIS VIRAL
     Dosage: RECTAL
     Route: 054
     Dates: start: 19620401, end: 19620401
  2. PHENERGAN [Suspect]
     Indication: VOMITING
     Dosage: RECTAL
     Route: 054
     Dates: start: 19620401, end: 19620401
  3. CHLOROMYCETIN (CHLOROAMPHENICOL) [Concomitant]

REACTIONS (10)
  - ACCIDENTAL OVERDOSE [None]
  - BLINDNESS [None]
  - COMA [None]
  - CONVULSION [None]
  - DRUG PRESCRIBING ERROR [None]
  - DYSPNOEA [None]
  - RESPIRATORY ARREST [None]
  - RESPIRATORY DISTRESS [None]
  - SYNCOPE [None]
  - VOMITING [None]
